FAERS Safety Report 9510099 (Version 1)
Quarter: 2013Q3

REPORT INFORMATION
  Report Type: Spontaneous
  Country: US (occurrence: US)
  Receive Date: 20130909
  Receipt Date: 20130909
  Transmission Date: 20140515
  Serious: No
  Sender: FDA-Public Use
  Company Number: US-BRISTOL-MYERS SQUIBB COMPANY-18767095

PATIENT
  Age: 74 Year
  Sex: Female
  Weight: 72.56 kg

DRUGS (1)
  1. ABILIFY TABS 5 MG [Suspect]
     Dosage: DOSE INCREASED TO 5 MG

REACTIONS (2)
  - Vertigo [Unknown]
  - Nausea [Unknown]
